FAERS Safety Report 18391346 (Version 1)
Quarter: 2020Q4

REPORT INFORMATION
  Report Type: Spontaneous
  Country: GB (occurrence: GB)
  Receive Date: 20201016
  Receipt Date: 20201016
  Transmission Date: 20210114
  Serious: Yes (Other)
  Sender: FDA-Public Use
  Company Number: GB-SHILPA MEDICARE LIMITED-SML-GB-2020-00483

PATIENT
  Sex: Female

DRUGS (1)
  1. IMATINIB, UNKNOWN [Suspect]
     Active Substance: IMATINIB
     Indication: CHRONIC MYELOID LEUKAEMIA
     Dosage: 400 MG
     Route: 065
     Dates: start: 20191111, end: 20200212

REACTIONS (4)
  - Malignant neoplasm progression [Unknown]
  - Platelet count increased [Unknown]
  - Chronic myeloid leukaemia [Unknown]
  - Drug resistance [Unknown]
